FAERS Safety Report 14204555 (Version 1)
Quarter: 2017Q4

REPORT INFORMATION
  Report Type: Spontaneous
  Country: US (occurrence: None)
  Receive Date: 20171117
  Receipt Date: 20171117
  Transmission Date: 20180321
  Serious: Yes (Hospitalization, Other)
  Sender: FDA-Public Use
  Company Number: None

PATIENT
  Age: 71 Year
  Sex: Female

DRUGS (3)
  1. SIMVASTATIN. [Suspect]
     Active Substance: SIMVASTATIN
     Dates: start: 20120601, end: 20150316
  2. AMLODIPINE [Concomitant]
     Active Substance: AMLODIPINE BESYLATE
  3. QUNOL LIQUID COQ10 SUPERIOR ABSORPTION [Suspect]
     Active Substance: DIETARY SUPPLEMENT
     Dates: start: 20141206, end: 20150305

REACTIONS (3)
  - Hepatitis acute [None]
  - Drug-induced liver injury [None]
  - Hepatitis E antibody positive [None]

NARRATIVE: CASE EVENT DATE: 20150310
